FAERS Safety Report 12142211 (Version 2)
Quarter: 2016Q1

REPORT INFORMATION
  Report Type: Report from Study
  Country: US (occurrence: US)
  Receive Date: 20160303
  Receipt Date: 20160331
  Transmission Date: 20160526
  Serious: Yes (Other)
  Sender: FDA-Public Use
  Company Number: US-JNJFOC-20160302397

PATIENT
  Age: 60 Year
  Sex: Male

DRUGS (1)
  1. IMBRUVICA [Suspect]
     Active Substance: IBRUTINIB
     Indication: CHRONIC LYMPHOCYTIC LEUKAEMIA
     Route: 065
     Dates: start: 20150726

REACTIONS (10)
  - Haemorrhage [Recovered/Resolved]
  - Peripheral swelling [Unknown]
  - Platelet count decreased [Unknown]
  - Incorrect dose administered [Not Recovered/Not Resolved]
  - White blood cell count decreased [Unknown]
  - Upper extremity mass [Unknown]
  - Product difficult to swallow [Not Recovered/Not Resolved]
  - Joint swelling [Unknown]
  - Viral infection [Recovering/Resolving]
  - Off label use [Unknown]

NARRATIVE: CASE EVENT DATE: 2015
